FAERS Safety Report 14016657 (Version 5)
Quarter: 2017Q4

REPORT INFORMATION
  Report Type: Spontaneous
  Country: US (occurrence: US)
  Receive Date: 20170927
  Receipt Date: 20171024
  Transmission Date: 20180321
  Serious: Yes (Hospitalization, Other)
  Sender: FDA-Public Use
  Company Number: US-PFIZER INC-2017417007

PATIENT
  Age: 56 Year
  Sex: Male
  Weight: 72.11 kg

DRUGS (34)
  1. LYRICA [Interacting]
     Active Substance: PREGABALIN
     Indication: PAIN
     Dosage: 75 MG, UNK
     Dates: start: 2007, end: 20171009
  2. CODEINE [Interacting]
     Active Substance: CODEINE
     Indication: CHRONIC OBSTRUCTIVE PULMONARY DISEASE
  3. TAMSULOSIN [Concomitant]
     Active Substance: TAMSULOSIN
     Dosage: 0.4 MG, UNK
     Dates: start: 2009
  4. LYRICA [Suspect]
     Active Substance: PREGABALIN
     Indication: NERVE INJURY
     Dosage: UNK
     Dates: start: 2004
  5. OXAZEPAM. [Interacting]
     Active Substance: OXAZEPAM
     Indication: ANXIETY
     Dosage: 15 MG, 2X/DAY
     Dates: start: 2016, end: 201706
  6. ISOSORBIDE MONONITRATE. [Concomitant]
     Active Substance: ISOSORBIDE MONONITRATE
     Dosage: 120 MG, UNK
     Dates: start: 2012
  7. NORCO [Interacting]
     Active Substance: ACETAMINOPHEN\HYDROCODONE BITARTRATE
     Indication: NERVE INJURY
  8. CODEINE [Interacting]
     Active Substance: CODEINE
     Indication: COUGH
     Dosage: 10MG 100MG 5/ML
     Dates: start: 2017
  9. PROAIR HFA [Concomitant]
     Active Substance: ALBUTEROL SULFATE
     Indication: ASTHMA
     Dosage: UNK , AS NEEDED (COUPLE OF YEARS)
     Route: 055
  10. NITROGLYCERIN. [Concomitant]
     Active Substance: NITROGLYCERIN
     Dosage: UNK
     Route: 060
     Dates: start: 2002
  11. NORCO [Interacting]
     Active Substance: ACETAMINOPHEN\HYDROCODONE BITARTRATE
     Indication: PAIN
     Dosage: 7.5 MG, AS NEEDED (EVERY 4 -6 HOURS AS NEEDED - TAKES 2-3 A DAY)
     Route: 048
     Dates: start: 2009
  12. DURAGESIC [Interacting]
     Active Substance: FENTANYL
     Indication: NERVE INJURY
     Dosage: UNK 100MCG/HR 1 PATCH 72 HRS
     Dates: start: 2009
  13. SPIRIVA [Concomitant]
     Active Substance: TIOTROPIUM BROMIDE MONOHYDRATE
     Indication: ASTHMA
     Dosage: UNK, 1X/DAY (COUPLE OF YEARS AGO)
     Route: 055
  14. SPIRIVA [Concomitant]
     Active Substance: TIOTROPIUM BROMIDE MONOHYDRATE
     Indication: CHRONIC OBSTRUCTIVE PULMONARY DISEASE
  15. GABAPENTIN. [Concomitant]
     Active Substance: GABAPENTIN
     Indication: PAIN
     Dosage: 300 MG, UNK
     Dates: start: 20171009
  16. PRILOSEC [Concomitant]
     Active Substance: OMEPRAZOLE MAGNESIUM
     Dosage: 20 MG, UNK
     Dates: start: 2010
  17. LYRICA [Interacting]
     Active Substance: PREGABALIN
     Indication: SWELLING
     Dosage: 100 MG, 2X/DAY
     Dates: start: 2014
  18. GUAIFENESIN. [Interacting]
     Active Substance: GUAIFENESIN
     Indication: CHRONIC OBSTRUCTIVE PULMONARY DISEASE
     Dosage: 10MG 100MG 5/ML
     Dates: start: 2017
  19. GUAIFENESIN. [Interacting]
     Active Substance: GUAIFENESIN
     Indication: NASOPHARYNGITIS
  20. SYMBICORT [Concomitant]
     Active Substance: BUDESONIDE\FORMOTEROL FUMARATE DIHYDRATE
     Indication: ASTHMA
     Dosage: UNK, 2X/DAY (COUPLE OF YEARS AGO)
     Route: 055
  21. GABAPENTIN. [Concomitant]
     Active Substance: GABAPENTIN
     Indication: NERVE INJURY
  22. PROSCAR [Concomitant]
     Active Substance: FINASTERIDE
     Dosage: 5 MG, UNK
     Dates: start: 2009
  23. FENTANYL. [Interacting]
     Active Substance: FENTANYL
     Indication: NERVE INJURY
     Dosage: UNK (100MCG/HR 1 PATCH 72 HRS)
     Route: 062
     Dates: start: 2009
  24. OXAZEPAM. [Interacting]
     Active Substance: OXAZEPAM
     Indication: NECK PAIN
     Dosage: 10 MG, 2X/DAY
     Dates: start: 20170601
  25. OXAZEPAM. [Interacting]
     Active Substance: OXAZEPAM
     Indication: SWELLING
  26. VICODIN [Interacting]
     Active Substance: ACETAMINOPHEN\HYDROCODONE BITARTRATE
     Dosage: UNK
  27. PROAIR HFA [Concomitant]
     Active Substance: ALBUTEROL SULFATE
     Indication: CHRONIC OBSTRUCTIVE PULMONARY DISEASE
  28. ATIVAN [Concomitant]
     Active Substance: LORAZEPAM
     Indication: ANXIETY
     Dosage: UNK AS NEEDED
     Dates: end: 2017
  29. ASPIRIN 81 [Concomitant]
     Active Substance: ASPIRIN
     Dosage: 81 MG, UNK
     Dates: start: 2002
  30. LYRICA [Interacting]
     Active Substance: PREGABALIN
     Indication: MUSCLE SPASMS
     Dosage: 75 MG, UNK (2-3 TIME A DAY)
     Dates: start: 2009
  31. FENTANYL. [Interacting]
     Active Substance: FENTANYL
     Indication: PAIN
     Dosage: 100 UG, UNK
     Route: 062
     Dates: start: 2009
  32. NORCO [Interacting]
     Active Substance: ACETAMINOPHEN\HYDROCODONE BITARTRATE
     Indication: SWELLING
  33. SYMBICORT [Concomitant]
     Active Substance: BUDESONIDE\FORMOTEROL FUMARATE DIHYDRATE
     Indication: CHRONIC OBSTRUCTIVE PULMONARY DISEASE
  34. CHERATUSSIN AC [Interacting]
     Active Substance: CODEINE PHOSPHATE\GUAIFENESIN
     Indication: CHRONIC OBSTRUCTIVE PULMONARY DISEASE
     Dosage: UNK [CODEINE PHOSPHATE 10 MG]/[GUAIFENESIN 100 MG]
     Dates: start: 2016

REACTIONS (16)
  - Loss of consciousness [Not Recovered/Not Resolved]
  - Pain [Not Recovered/Not Resolved]
  - Drug interaction [Not Recovered/Not Resolved]
  - Blister [Unknown]
  - Malignant polyp [Unknown]
  - Disorientation [Unknown]
  - Rash [Unknown]
  - Product use in unapproved indication [Not Recovered/Not Resolved]
  - Dizziness [Not Recovered/Not Resolved]
  - Mental impairment [Unknown]
  - Somnolence [Unknown]
  - Muscle spasms [Not Recovered/Not Resolved]
  - Condition aggravated [Not Recovered/Not Resolved]
  - Intentional product use issue [Unknown]
  - Swelling [Not Recovered/Not Resolved]
  - Memory impairment [Not Recovered/Not Resolved]

NARRATIVE: CASE EVENT DATE: 2004
